FAERS Safety Report 8208611-2 (Version None)
Quarter: 2012Q1

REPORT INFORMATION
  Report Type: 
  Country: None (occurrence: None)
  Receive Date: 20120314
  Receipt Date: 20120309
  Transmission Date: 20120608
  Serious: Yes (Other)
  Sender: FDA-Public Use
  Company Number: GB-GLAXOSMITHKLINE-B0788022A

PATIENT
  Sex: Male

DRUGS (1)
  1. PAROXETINE HCL [Suspect]
     Indication: ANXIETY
     Route: 065
     Dates: start: 20010101

REACTIONS (6)
  - ILL-DEFINED DISORDER [None]
  - SOCIAL AVOIDANT BEHAVIOUR [None]
  - DRUG DEPENDENCE [None]
  - EMOTIONAL POVERTY [None]
  - AGGRESSION [None]
  - PAIN [None]
